FAERS Safety Report 12267813 (Version 6)
Quarter: 2017Q3

REPORT INFORMATION
  Report Type: Report from Study
  Country: JP (occurrence: JP)
  Receive Date: 20160414
  Receipt Date: 20170731
  Transmission Date: 20171127
  Serious: Yes (Hospitalization, Other)
  Sender: FDA-Public Use
  Company Number: JP-INCYTE CORPORATION-2014IN003687

PATIENT

DRUGS (12)
  1. JAKAVI [Suspect]
     Active Substance: RUXOLITINIB
     Indication: MYELOFIBROSIS
     Dosage: 15 MG, BID
     Route: 048
     Dates: start: 20141117, end: 20141130
  2. METENOLONE ACETATE [Concomitant]
     Active Substance: METHENOLONE ACETATE
     Dosage: 20 MG, UNK
     Route: 048
  3. JAKAVI [Suspect]
     Active Substance: RUXOLITINIB
     Dosage: 5 MG, QD
     Route: 048
     Dates: start: 20150522, end: 20160721
  4. JAKAVI [Suspect]
     Active Substance: RUXOLITINIB
     Dosage: 5 MG, BID
     Route: 048
     Dates: start: 20160722
  5. JAKAVI [Suspect]
     Active Substance: RUXOLITINIB
     Dosage: 10 MG, BID
     Route: 048
     Dates: start: 20141201, end: 20141203
  6. JAKAVI [Suspect]
     Active Substance: RUXOLITINIB
     Dosage: 5 MG, BID
     Route: 048
     Dates: start: 20150512, end: 20150521
  7. METENOLONE ACETATE [Concomitant]
     Active Substance: METHENOLONE ACETATE
     Indication: MYELOFIBROSIS
     Dosage: 20 MG, UNK
     Route: 048
  8. FEBURIC [Concomitant]
     Active Substance: FEBUXOSTAT
     Indication: PRODUCT USED FOR UNKNOWN INDICATION
     Dosage: 60 MG, QD
     Route: 048
     Dates: start: 20141126, end: 20141202
  9. METENOLONE ACETATE [Concomitant]
     Active Substance: METHENOLONE ACETATE
     Dosage: 20 MG, UNK
     Route: 048
  10. METENOLONE ACETATE [Concomitant]
     Active Substance: METHENOLONE ACETATE
     Dosage: 20 MG, QD
     Route: 048
  11. JAKAVI [Suspect]
     Active Substance: RUXOLITINIB
     Dosage: 5 MG, QD
     Route: 048
     Dates: start: 20141204, end: 20141206
  12. METENOLONE ACETATE [Concomitant]
     Active Substance: METHENOLONE ACETATE
     Dosage: 20 MG, QD
     Route: 048

REACTIONS (10)
  - Blood potassium increased [Recovered/Resolved]
  - Blood creatinine increased [Recovered/Resolved]
  - Blood uric acid increased [Recovered/Resolved]
  - Blood uric acid increased [Recovered/Resolved]
  - Platelet count decreased [Recovered/Resolved]
  - Blood potassium increased [Recovered/Resolved]
  - Blood creatinine increased [Recovered/Resolved]
  - Myelofibrosis [Unknown]
  - Cellulitis [Recovered/Resolved]
  - Malaise [Recovering/Resolving]

NARRATIVE: CASE EVENT DATE: 20141121
